FAERS Safety Report 9733487 (Version 2)
Quarter: 2013Q4

REPORT INFORMATION
  Report Type: Spontaneous
  Country: ZA (occurrence: ZA)
  Receive Date: 20131205
  Receipt Date: 20131205
  Transmission Date: 20140711
  Serious: Yes (Hospitalization)
  Sender: FDA-Public Use
  Company Number: ZA-ABBVIE-13P-143-1141112-00

PATIENT
  Age: 32 Year
  Sex: Male
  Weight: 90 kg

DRUGS (2)
  1. HUMIRA [Suspect]
     Indication: CROHN^S DISEASE
     Route: 058
  2. PENTASA [Suspect]
     Indication: CROHN^S DISEASE
     Route: 048

REACTIONS (4)
  - Myocarditis [Recovered/Resolved]
  - Pericarditis [Recovered/Resolved]
  - Chest discomfort [Unknown]
  - Pyrexia [Unknown]
